FAERS Safety Report 21988025 (Version 2)
Quarter: 2023Q1

REPORT INFORMATION
  Report Type: Report from Study
  Country: JP (occurrence: JP)
  Receive Date: 20230214
  Receipt Date: 20230306
  Transmission Date: 20230418
  Serious: No
  Sender: FDA-Public Use
  Company Number: JP-MSD-2302JPN000708J

PATIENT
  Age: 81 Year
  Sex: Female
  Weight: 42 kg

DRUGS (3)
  1. MOLNUPIRAVIR [Suspect]
     Active Substance: MOLNUPIRAVIR
     Indication: COVID-19 treatment
     Dosage: 800 MILLIGRAM, ONCE
     Route: 048
     Dates: start: 20220107, end: 20220107
  2. MOLNUPIRAVIR [Suspect]
     Active Substance: MOLNUPIRAVIR
     Dosage: 800 MILLIGRAM, BID
     Route: 048
     Dates: start: 20220108, end: 20220111
  3. MOLNUPIRAVIR [Suspect]
     Active Substance: MOLNUPIRAVIR
     Dosage: 800 MILLIGRAM, ONCE
     Route: 048
     Dates: start: 20220112, end: 20220112

REACTIONS (2)
  - Product use in unapproved indication [Unknown]
  - No adverse event [Unknown]

NARRATIVE: CASE EVENT DATE: 20220107
